FAERS Safety Report 19510896 (Version 1)
Quarter: 2021Q3

REPORT INFORMATION
  Report Type: Spontaneous
  Country: US (occurrence: US)
  Receive Date: 20210709
  Receipt Date: 20210709
  Transmission Date: 20211014
  Serious: Yes (Hospitalization)
  Sender: FDA-Public Use
  Company Number: None

PATIENT
  Age: 20 Year
  Sex: Male
  Weight: 103.2 kg

DRUGS (4)
  1. ONCASPAR [Suspect]
     Active Substance: PEGASPARGASE
     Dates: end: 20210623
  2. RITUXIMAB (MOAB C2B8 ANTI CD20, CHIMERIC) [Suspect]
     Active Substance: RITUXIMAB
     Dates: end: 20210611
  3. VINCRISTINE SULFATE. [Suspect]
     Active Substance: VINCRISTINE SULFATE
     Dates: end: 20210702
  4. METHOTREXATE. [Suspect]
     Active Substance: METHOTREXATE
     Dates: end: 20210702

REACTIONS (4)
  - Nausea [None]
  - Chills [None]
  - Abdominal pain [None]
  - Vomiting [None]

NARRATIVE: CASE EVENT DATE: 20210705
